FAERS Safety Report 6584378-9 (Version None)
Quarter: 2010Q1

REPORT INFORMATION
  Report Type: 
  Country: None (occurrence: None)
  Receive Date: 20100216
  Receipt Date: 20100202
  Transmission Date: 20100710
  Serious: No
  Sender: FDA-Public Use
  Company Number: US-ABBOTT-10P-163-0623086-00

PATIENT
  Sex: Female
  Weight: 68.1 kg

DRUGS (11)
  1. SIMCOR [Suspect]
     Indication: BLOOD CHOLESTEROL INCREASED
     Dosage: 500/20 MG
     Dates: start: 20100101
  2. SIMCOR [Suspect]
     Indication: BLOOD TRIGLYCERIDES INCREASED
  3. SIMCOR [Suspect]
     Indication: HIGH DENSITY LIPOPROTEIN DECREASED
  4. SIMCOR [Suspect]
     Indication: LOW DENSITY LIPOPROTEIN INCREASED
  5. DOXEPIN HCL [Concomitant]
     Indication: CYSTITIS
  6. PIROXICAM [Concomitant]
     Indication: CYSTITIS
  7. LISINOPRIL [Concomitant]
     Indication: HYPERTENSION
  8. PREMARIN [Concomitant]
     Indication: MENOPAUSE
  9. ZANTAC [Concomitant]
     Indication: PROPHYLAXIS AGAINST GASTROINTESTINAL ULCER
  10. ZYRTEC [Concomitant]
     Indication: HYPERSENSITIVITY
  11. ULTRA MEGA MULTIVITAMIN [Concomitant]
     Indication: DRUG USE FOR UNKNOWN INDICATION

REACTIONS (1)
  - FLUSHING [None]
